FAERS Safety Report 8571166-7 (Version None)
Quarter: 2012Q3

REPORT INFORMATION
  Report Type: 
  Country: None (occurrence: None)
  Receive Date: 20120806
  Receipt Date: 20120731
  Transmission Date: 20120928
  Serious: No
  Sender: FDA-Public Use
  Company Number: US-PFIZER INC-2012172107

PATIENT
  Sex: Female

DRUGS (3)
  1. GABAPENTIN [Suspect]
     Indication: BACK DISORDER
     Dosage: 300 MG, UNK
  2. NEURONTIN [Suspect]
     Dosage: 600 MG, UNK
  3. PREMPRO [Suspect]
     Dosage: UNK

REACTIONS (1)
  - PAIN [None]
